FAERS Safety Report 16289994 (Version 1)
Quarter: 2019Q2

REPORT INFORMATION
  Report Type: Spontaneous
  Country: PL (occurrence: PL)
  Receive Date: 20190509
  Receipt Date: 20190509
  Transmission Date: 20190711
  Serious: Yes (Hospitalization)
  Sender: FDA-Public Use
  Company Number: PL-BAYER-2019-090444

PATIENT
  Age: 66 Year
  Sex: Female
  Weight: 94 kg

DRUGS (1)
  1. ULTRAVIST [Suspect]
     Active Substance: IOPROMIDE
     Indication: ANGIOGRAM
     Dosage: 80 ML, UNK
     Route: 042

REACTIONS (7)
  - Urticaria [Recovering/Resolving]
  - Ocular hyperaemia [Recovering/Resolving]
  - Feeling hot [Recovering/Resolving]
  - Pruritus generalised [Recovering/Resolving]
  - Vision blurred [Recovering/Resolving]
  - Face oedema [Recovering/Resolving]
  - Erythema [Recovering/Resolving]

NARRATIVE: CASE EVENT DATE: 20161014
